FAERS Safety Report 6101610-6 (Version None)
Quarter: 2009Q1

REPORT INFORMATION
  Report Type: 
  Country: None (occurrence: None)
  Receive Date: 20090304
  Receipt Date: 20090227
  Transmission Date: 20090719
  Serious: Yes (Hospitalization)
  Sender: FDA-Public Use
  Company Number: US-BRISTOL-MYERS SQUIBB COMPANY-14526115

PATIENT
  Age: 57 Year
  Sex: Male
  Weight: 105 kg

DRUGS (4)
  1. QUESTRAN [Suspect]
     Indication: CROHN'S DISEASE
  2. CYANOCOBALAMIN [Suspect]
     Indication: CROHN'S DISEASE
  3. REMICADE [Suspect]
     Indication: CROHN'S DISEASE
     Dosage: 5MG/KG ON 16NOV1999 + 18JAN2001 10MG/KG ON 06AUG2001 TO UNKNOWN DATES.
     Route: 042
     Dates: start: 19990617
  4. HUMIRA [Suspect]
     Indication: CROHN'S DISEASE

REACTIONS (1)
  - DEHYDRATION [None]
